FAERS Safety Report 5826883-6 (Version None)
Quarter: 2008Q3

REPORT INFORMATION
  Report Type: 
  Country: None (occurrence: None)
  Receive Date: 20080729
  Receipt Date: 20080729
  Transmission Date: 20090109
  Serious: Yes (Hospitalization)
  Sender: FDA-Public Use
  Company Number: None

PATIENT
  Sex: Female
  Weight: 71.2147 kg

DRUGS (5)
  1. AVASTIN [Suspect]
  2. DEXAMETHASONE [Concomitant]
  3. KEPPRA [Concomitant]
  4. PEPCID [Concomitant]
  5. MELATONIN [Concomitant]

REACTIONS (1)
  - NO ADVERSE EVENT [None]
